FAERS Safety Report 22399486 (Version 3)
Quarter: 2024Q3

REPORT INFORMATION
  Report Type: Report from Study
  Country: FR (occurrence: FR)
  Receive Date: 20230602
  Receipt Date: 20240927
  Transmission Date: 20241017
  Serious: Yes (Hospitalization)
  Sender: SERVIER
  Company Number: FR-SERVIER-S23005685

PATIENT

DRUGS (8)
  1. PEGASPARGASE [Suspect]
     Active Substance: PEGASPARGASE
     Indication: Acute lymphocytic leukaemia
     Dosage: 780 IU, ON D12, D26
     Route: 042
     Dates: start: 20211126, end: 20211210
  2. PEGASPARGASE [Suspect]
     Active Substance: PEGASPARGASE
     Dosage: 780 IU
     Route: 042
     Dates: start: 20211213
  3. METHOTREXATE [Suspect]
     Active Substance: METHOTREXATE
     Indication: Acute lymphocytic leukaemia
     Dosage: 12 MG, D1, D13
     Route: 037
     Dates: start: 20211115
  4. PREDNISOLONE [Suspect]
     Active Substance: PREDNISOLONE
     Indication: Acute lymphocytic leukaemia
     Dosage: 35 MG, D1, D28
     Route: 042
     Dates: start: 20211115
  5. VINCRISTINE [Suspect]
     Active Substance: VINCRISTINE
     Indication: Acute lymphocytic leukaemia
     Dosage: 0.9 MG, D8, D15
     Route: 042
     Dates: start: 20211122
  6. DAUNORUBICIN [Suspect]
     Active Substance: DAUNORUBICIN
     Indication: Acute lymphocytic leukaemia
     Dosage: 19 MG, D8, D15
     Route: 042
     Dates: start: 20211122
  7. CYTARABINE [Suspect]
     Active Substance: CYTARABINE
     Indication: Acute lymphocytic leukaemia
     Dosage: 30 MG, D13
     Route: 037
     Dates: start: 20211127
  8. HYDROCORTISONE [Suspect]
     Active Substance: HYDROCORTISONE\HYDROCORTISONE ACETATE
     Indication: Acute lymphocytic leukaemia
     Dosage: 15 MG, D13
     Route: 037
     Dates: start: 20211127

REACTIONS (5)
  - Dysphagia [Recovered/Resolved]
  - Malnutrition [Recovered/Resolved]
  - Pain in extremity [Recovered/Resolved]
  - Blood culture positive [Recovered/Resolved]
  - Pancreatitis [Recovered/Resolved]

NARRATIVE: CASE EVENT DATE: 20211201
